FAERS Safety Report 11592578 (Version 1)
Quarter: 2015Q4

REPORT INFORMATION
  Report Type: Spontaneous
  Country: BR (occurrence: BR)
  Receive Date: 20151005
  Receipt Date: 20151005
  Transmission Date: 20160304
  Serious: Yes (Hospitalization, Other)
  Sender: FDA-Public Use
  Company Number: BR-BAYER-2014-136474

PATIENT
  Age: 41 Year
  Sex: Female

DRUGS (2)
  1. YASMIN [Suspect]
     Active Substance: DROSPIRENONE\ETHINYL ESTRADIOL
     Indication: DYSMENORRHOEA
  2. YASMIN [Suspect]
     Active Substance: DROSPIRENONE\ETHINYL ESTRADIOL
     Indication: UTERINE LEIOMYOMA
     Dosage: UNK
     Route: 048
     Dates: start: 2014, end: 201408

REACTIONS (14)
  - Intracranial venous sinus thrombosis [None]
  - Seizure [None]
  - Blindness [None]
  - Visual acuity reduced [None]
  - Transverse sinus thrombosis [None]
  - Diplopia [None]
  - Cerebrovascular accident [None]
  - Subarachnoid haemorrhage [None]
  - Feeling abnormal [None]
  - Headache [None]
  - Agraphia [None]
  - Motor dysfunction [None]
  - Product use issue [None]
  - Nasal congestion [None]

NARRATIVE: CASE EVENT DATE: 20140808
